FAERS Safety Report 7525925-X (Version None)
Quarter: 2011Q2

REPORT INFORMATION
  Report Type: 
  Country: None (occurrence: None)
  Receive Date: 20110606
  Receipt Date: 20110527
  Transmission Date: 20111010
  Serious: Yes (Other)
  Sender: FDA-Public Use
  Company Number: B0724389A

PATIENT
  Age: 62 Year
  Sex: Male

DRUGS (6)
  1. DIAMICRON [Concomitant]
  2. NABUMETONE [Suspect]
     Route: 048
  3. INSULIN [Concomitant]
  4. HYPERIUM [Concomitant]
  5. CRESTOR [Concomitant]
  6. MICARDIS [Concomitant]

REACTIONS (2)
  - HYPOGLYCAEMIA [None]
  - DRUG INTERACTION [None]
